FAERS Safety Report 4548675-0 (Version None)
Quarter: 2005Q1

REPORT INFORMATION
  Report Type: 
  Country: None (occurrence: None)
  Receive Date: 20041227
  Receipt Date: 20040913
  Transmission Date: 20050727
  Serious: No
  Sender: FDA-Public Use
  Company Number: 04P-163-0273084-00

PATIENT
  Age: 56 Year
  Sex: Female
  Weight: 92.73 kg

DRUGS (4)
  1. HUMIRA [Suspect]
     Indication: RHEUMATOID ARTHRITIS
     Dosage: 40 MG, 1 IN 2 WK, SUBCUTANEOUS
     Route: 058
     Dates: start: 20040101
  2. SULFASALAZINE [Concomitant]
  3. ESTRACE [Concomitant]
  4. CELECOXIB [Concomitant]

REACTIONS (2)
  - AMNESIA [None]
  - FATIGUE [None]
